FAERS Safety Report 5800274-6 (Version None)
Quarter: 2008Q3

REPORT INFORMATION
  Report Type: 
  Country: None (occurrence: None)
  Receive Date: 20080703
  Receipt Date: 20080627
  Transmission Date: 20090109
  Serious: Yes (Hospitalization, Other)
  Sender: FDA-Public Use
  Company Number: PHBS2008US04945

PATIENT
  Age: 20 Year
  Sex: Male

DRUGS (4)
  1. METOPROLOL SUCCINATE [Interacting]
     Indication: VENTRICULAR TACHYCARDIA
     Dosage: 15 MG, ONCE/SINGLE
     Route: 042
  2. DILTIAZEM HCL [Suspect]
     Indication: ATRIAL FIBRILLATION
     Dosage: 25 MG, ONCE/SINGLE
     Route: 042
  3. DILTIAZEM HCL [Suspect]
     Dosage: 5 MG/H, UNK
     Route: 042
  4. ALBUTEROL [Concomitant]
     Indication: ASTHMA EXERCISE INDUCED
     Dosage: AS NEEDED

REACTIONS (5)
  - CARDIAC ARREST [None]
  - CARDIAC ELECTROPHYSIOLOGIC STUDY ABNORMAL [None]
  - CARDIOVERSION [None]
  - SURGERY [None]
  - WOLFF-PARKINSON-WHITE SYNDROME [None]
